FAERS Safety Report 5367956-4 (Version None)
Quarter: 2007Q2

REPORT INFORMATION
  Report Type: 
  Country: None (occurrence: None)
  Receive Date: 20070622
  Receipt Date: 20070611
  Transmission Date: 20071010
  Serious: Yes (Death, Hospitalization, Other)
  Sender: FDA-Public Use
  Company Number: BR-PFIZER INC-2007044237

PATIENT
  Age: 58 Year
  Sex: Female

DRUGS (1)
  1. SUTENT [Suspect]
     Indication: NEUROENDOCRINE CARCINOMA
     Route: 048
     Dates: start: 20070101, end: 20070301

REACTIONS (4)
  - DISEASE PROGRESSION [None]
  - LEUKOPENIA [None]
  - NEUROENDOCRINE CARCINOMA [None]
  - THROMBOCYTOPENIA [None]
